FAERS Safety Report 4933429-3 (Version None)
Quarter: 2006Q1

REPORT INFORMATION
  Report Type: 
  Country: None (occurrence: None)
  Receive Date: 20060306
  Receipt Date: 20060206
  Transmission Date: 20060701
  Serious: Yes (Other)
  Sender: FDA-Public Use
  Company Number: 2005JP002273

PATIENT
  Age: 49 Year
  Sex: Male
  Weight: 57.4 kg

DRUGS (9)
  1. CEFAZOLIN [Suspect]
     Indication: PROPHYLAXIS
     Dosage: 2G AS REQUIRED
     Route: 042
     Dates: start: 20010701
  2. CEFOTIAM HYDROCHLORIDE [Suspect]
     Dosage: 2G PER DAY
     Route: 065
     Dates: start: 20010701
  3. CEFOZOPRAN HYDROCHLORIDE [Suspect]
     Dosage: 2G PER DAY
     Route: 065
     Dates: start: 20010723
  4. LEVOFLOXACIN [Concomitant]
     Dosage: 300MG PER DAY
     Route: 065
  5. MINOCYCLINE HYDROCHLORIDE [Concomitant]
     Dosage: 100MG PER DAY
     Route: 065
  6. BISOPROLOL FUMARATE [Concomitant]
     Indication: ATRIAL FIBRILLATION
     Dosage: 5MG PER DAY
     Route: 065
  7. APRINDINE HYDROCHLORIDE [Concomitant]
     Indication: ATRIAL FIBRILLATION
     Dosage: 60MG PER DAY
     Route: 065
  8. WARFARIN POTASSIUM [Concomitant]
     Indication: ATRIAL FIBRILLATION
     Dosage: 3MG PER DAY
     Route: 065
  9. CALCIUM CARBONATE [Concomitant]
     Indication: RENAL FAILURE CHRONIC
     Dosage: 3G PER DAY
     Route: 048

REACTIONS (4)
  - CATHETER RELATED INFECTION [None]
  - INFLAMMATION [None]
  - LYMPHOCYTE STIMULATION TEST POSITIVE [None]
  - PYREXIA [None]
